FAERS Safety Report 8483327-6 (Version None)
Quarter: 2012Q3

REPORT INFORMATION
  Report Type: 
  Country: None (occurrence: None)
  Receive Date: 20120702
  Receipt Date: 20120619
  Transmission Date: 20120928
  Serious: No
  Sender: FDA-Public Use
  Company Number: US-ASTRAZENECA-2012SE34073

PATIENT
  Age: 8 Year
  Sex: Male

DRUGS (6)
  1. SEROQUEL XR [Suspect]
     Indication: AFFECTIVE DISORDER
     Route: 048
  2. SEROQUEL XR [Suspect]
     Route: 048
  3. SEROQUEL XR [Suspect]
     Indication: PARANOIA
     Route: 048
  4. SEROQUEL XR [Suspect]
     Route: 048
  5. SEROQUEL XR [Suspect]
     Indication: SCHIZOPHRENIA
     Route: 048
  6. SEROQUEL XR [Suspect]
     Route: 048

REACTIONS (7)
  - OFF LABEL USE [None]
  - HYPERHIDROSIS [None]
  - DELUSION [None]
  - HALLUCINATION, AUDITORY [None]
  - VITREOUS FLOATERS [None]
  - HALLUCINATION, VISUAL [None]
  - SCHIZOPHRENIA [None]
